FAERS Safety Report 8407361-7 (Version None)
Quarter: 2012Q2

REPORT INFORMATION
  Report Type: 
  Country: None (occurrence: None)
  Receive Date: 20120604
  Receipt Date: 20120521
  Transmission Date: 20120825
  Serious: Yes (Hospitalization)
  Sender: FDA-Public Use
  Company Number: GB-ELI_LILLY_AND_COMPANY-GB201204008567

PATIENT
  Age: 72 Year
  Sex: Male

DRUGS (9)
  1. MOMETASONE FUROATE [Concomitant]
     Dosage: 2 DF, BID
     Route: 045
  2. ALBUTEROL [Concomitant]
     Dosage: UNK, PRN
     Route: 055
  3. FLUTICASONE PROPIONATE/SALMETEROL [Concomitant]
     Dosage: 2 DF, BID
     Route: 055
  4. OLANZAPINE [Suspect]
     Dosage: 10 MG, BID
     Route: 048
     Dates: start: 20120102, end: 20120411
  5. CYANOCOBALAMIN [Concomitant]
     Dosage: 50 UG, QD
     Route: 048
  6. TRAZODONE HCL [Concomitant]
     Dosage: 200 MG, QD
     Route: 048
     Dates: end: 20120411
  7. ASPIRIN [Concomitant]
     Dosage: 75 MG, QD
     Route: 048
  8. MIRTAZAPINE [Concomitant]
     Dosage: 30 MG, QD
     Route: 048
     Dates: end: 20120411
  9. LACTULOSE [Concomitant]
     Dosage: 15 ML, BID
     Route: 048

REACTIONS (2)
  - NEUROLEPTIC MALIGNANT SYNDROME [None]
  - UNRESPONSIVE TO STIMULI [None]
